FAERS Safety Report 9330868 (Version 1)
Quarter: 2013Q2

REPORT INFORMATION
  Report Type: Spontaneous
  Country: US (occurrence: None)
  Receive Date: 20130531
  Receipt Date: 20130531
  Transmission Date: 20140414
  Serious: Yes (Hospitalization)
  Sender: FDA-Public Use
  Company Number: 1734685

PATIENT
  Age: 26 Year
  Sex: Male

DRUGS (5)
  1. NALOXONE HYDROCHLORIDE [Suspect]
     Indication: DRUG DETOXIFICATION
  2. PROPOFOL [Suspect]
     Indication: DRUG DETOXIFICATION
  3. CLONIDINE [Suspect]
     Indication: DRUG DETOXIFICATION
  4. NITROUS OXIDE [Suspect]
     Indication: DRUG DETOXIFICATION
  5. ANESTHETICS [Suspect]
     Indication: DRUG DETOXIFICATION

REACTIONS (3)
  - Pulseless electrical activity [None]
  - Cardiac arrest [None]
  - Necrotising fasciitis [None]
